FAERS Safety Report 19561914 (Version 1)
Quarter: 2021Q3

REPORT INFORMATION
  Report Type: Spontaneous
  Country: US (occurrence: US)
  Receive Date: 20210716
  Receipt Date: 20210716
  Transmission Date: 20211014
  Serious: No
  Sender: FDA-Public Use
  Company Number: None

PATIENT
  Age: 41 Year
  Sex: Female
  Weight: 79 kg

DRUGS (1)
  1. LEMTRADA [Suspect]
     Active Substance: ALEMTUZUMAB
     Indication: MULTIPLE SCLEROSIS
     Dosage: ?          OTHER FREQUENCY:DAILY X 5 DAYS;?
     Route: 042
     Dates: start: 20200810, end: 20200814

REACTIONS (2)
  - Rash [None]
  - Urticaria [None]

NARRATIVE: CASE EVENT DATE: 20200812
